FAERS Safety Report 7102942-5 (Version None)
Quarter: 2010Q4

REPORT INFORMATION
  Report Type: 
  Country: None (occurrence: None)
  Receive Date: 20101108
  Receipt Date: 20101025
  Transmission Date: 20110411
  Serious: Yes (Other)
  Sender: FDA-Public Use
  Company Number: 1000016356

PATIENT
  Age: 37 Year
  Sex: Female
  Weight: 74 kg

DRUGS (5)
  1. CITALOPRAM HYDROBROMIDE [Suspect]
     Indication: DEPRESSION
     Dosage: 20 MG (20 MG,1 IN 1 D),ORAL
     Route: 048
     Dates: start: 20100618, end: 20100902
  2. CITALOPRAM HYDROBROMIDE [Suspect]
     Indication: DEPRESSION
     Dosage: 10 MG (10 MG,1 IN 1 D),ORAL
     Route: 048
     Dates: start: 20100903
  3. LEVOTHYROXINE SODIUM [Suspect]
     Indication: HYPOTHYROIDISM
     Dosage: 175 MCG (175 MCG,1 IN 1 D),ORAL
     Route: 048
     Dates: end: 20100901
  4. LEVOTHYROXINE SODIUM [Suspect]
     Indication: HYPOTHYROIDISM
     Dosage: 125 MCG (125 MCG,1 IN 1 D),ORAL
     Route: 048
     Dates: start: 20100902
  5. VITAMIN B COMPLEX (NICOTINAMIDE, RIBOFLAVINE, THIAMINE HYDROCHLORIDE) [Concomitant]

REACTIONS (2)
  - ANXIETY [None]
  - DRUG INTERACTION [None]
